FAERS Safety Report 9943334 (Version 1)
Quarter: 2014Q1

REPORT INFORMATION
  Report Type: Spontaneous
  Country: FR (occurrence: FR)
  Receive Date: 20140303
  Receipt Date: 20140303
  Transmission Date: 20141002
  Serious: Yes (Hospitalization)
  Sender: FDA-Public Use
  Company Number: FR-PFIZER INC-2014056375

PATIENT
  Age: 82 Year
  Sex: Male

DRUGS (14)
  1. AZITHROMYCIN [Suspect]
     Indication: PNEUMONIA
     Dosage: 1 DF, 1X/DAY
     Route: 048
     Dates: start: 20140106, end: 20140109
  2. LYRICA [Suspect]
     Dosage: 1 DF, DAILY
     Route: 048
  3. OROKEN [Suspect]
     Dosage: 200 MG, TWICE DAILY
     Route: 048
     Dates: start: 20140110, end: 20140113
  4. SURGAM [Suspect]
     Dosage: 200 MG, THRICE DAILY
     Route: 048
     Dates: start: 20140110, end: 20140113
  5. PARIET [Suspect]
     Dosage: 20 MG, ONCE PER DAY
     Route: 048
     Dates: start: 20140110, end: 20140113
  6. COLCHIMAX [Suspect]
     Dosage: UNK
     Route: 048
  7. CORTANCYL [Concomitant]
     Dosage: UNK
  8. PROGRAF [Concomitant]
     Dosage: UNK
  9. ATACAND [Concomitant]
     Dosage: UNK
  10. KAYEXALATE [Concomitant]
     Dosage: UNK
  11. ADENURIC [Concomitant]
     Dosage: UNK
  12. CATAPRESSAN [Concomitant]
     Dosage: UNK
  13. MUCOMYST [Concomitant]
     Indication: LUNG DISORDER
     Dosage: UNK
     Dates: start: 20140106
  14. PARACETAMOL [Concomitant]
     Indication: LUNG DISORDER
     Dosage: UNK
     Dates: start: 20140106

REACTIONS (2)
  - Confusional state [Recovered/Resolved]
  - Disorientation [Recovered/Resolved]
